FAERS Safety Report 8549042-5 (Version None)
Quarter: 2012Q3

REPORT INFORMATION
  Report Type: 
  Country: None (occurrence: None)
  Receive Date: 20120730
  Receipt Date: 20120725
  Transmission Date: 20120928
  Serious: No
  Sender: FDA-Public Use
  Company Number: US-PFIZER INC-2012181418

PATIENT
  Sex: Female
  Weight: 60.317 kg

DRUGS (4)
  1. XANAX [Concomitant]
     Indication: NERVOUSNESS
     Dosage: 0.5 MG, DAILY
     Dates: start: 20020101
  2. PRISTIQ [Suspect]
     Indication: DEPRESSION
     Dosage: 50 MG, DAILY
  3. CALAN [Concomitant]
     Indication: HYPERTENSION
     Dosage: UNK, DAILY
  4. ENALAPRIL MALEATE [Concomitant]
     Indication: HYPERTENSION
     Dosage: 10 MG, DAILY

REACTIONS (1)
  - DRUG INEFFECTIVE [None]
